FAERS Safety Report 9668668 (Version 1)
Quarter: 2013Q4

REPORT INFORMATION
  Report Type: Spontaneous
  Country: RO (occurrence: RO)
  Receive Date: 20131105
  Receipt Date: 20131105
  Transmission Date: 20140711
  Serious: Yes (Death)
  Sender: FDA-Public Use
  Company Number: RO-ROCHE-1294611

PATIENT
  Age: 21 Year
  Sex: Female

DRUGS (22)
  1. ENFUVIRTIDE [Suspect]
     Indication: HIV INFECTION
     Route: 065
     Dates: start: 201104
  2. LOPINAVIR/RITONAVIR [Suspect]
     Indication: HIV INFECTION
     Route: 065
     Dates: start: 2005, end: 2011
  3. LOPINAVIR/RITONAVIR [Suspect]
     Route: 065
     Dates: start: 201101, end: 201104
  4. LOPINAVIR/RITONAVIR [Suspect]
     Route: 065
     Dates: start: 201104
  5. LAMIVUDINE/ZIDOVUDINE [Suspect]
     Indication: HIV INFECTION
     Route: 065
     Dates: start: 2004
  6. LAMIVUDINE/ZIDOVUDINE [Suspect]
     Route: 065
     Dates: start: 2005, end: 2011
  7. LAMIVUDINE/ZIDOVUDINE [Suspect]
     Route: 065
     Dates: start: 201101, end: 201104
  8. LAMIVUDINE/ZIDOVUDINE [Suspect]
     Route: 065
     Dates: start: 201104
  9. NEVIRAPINE [Suspect]
     Indication: HIV INFECTION
     Route: 065
     Dates: start: 2004
  10. MYCOBUTIN [Suspect]
     Indication: TUBERCULOSIS
     Route: 065
  11. MYCOBUTIN [Suspect]
     Dosage: RESTARTED
     Route: 065
  12. MYCOBUTIN [Suspect]
     Route: 065
  13. ISONIAZID [Suspect]
     Indication: TUBERCULOSIS
     Route: 065
  14. ISONIAZID [Suspect]
     Dosage: RESTARTED
     Route: 065
  15. ISONIAZID [Suspect]
     Route: 065
  16. ETHAMBUTOL [Suspect]
     Indication: TUBERCULOSIS
     Route: 065
  17. ETHAMBUTOL [Suspect]
     Dosage: RESTARTED
     Route: 065
  18. ETHAMBUTOL [Suspect]
     Route: 065
  19. PYRAZINAMIDE [Suspect]
     Indication: TUBERCULOSIS
     Route: 065
  20. PYRAZINAMIDE [Suspect]
     Dosage: RESTARTED
     Route: 065
  21. PYRAZINAMIDE [Suspect]
     Route: 065
  22. STREPTOMYCIN [Suspect]
     Indication: TUBERCULOSIS
     Route: 065

REACTIONS (2)
  - Maternal exposure during pregnancy [Unknown]
  - Death neonatal [Fatal]
